FAERS Safety Report 5391958-5 (Version None)
Quarter: 2007Q3

REPORT INFORMATION
  Report Type: 
  Country: None (occurrence: None)
  Receive Date: 20070720
  Receipt Date: 20070712
  Transmission Date: 20080115
  Serious: Yes (Other)
  Sender: FDA-Public Use
  Company Number: PHEH2007US04727

PATIENT
  Age: 46 Year
  Sex: Male
  Weight: 98.412 kg

DRUGS (6)
  1. ZELNORM [Suspect]
     Indication: IRRITABLE BOWEL SYNDROME
     Dosage: 6 MG, BID
     Route: 048
     Dates: start: 20061101, end: 20070406
  2. PREVACID [Concomitant]
     Indication: DYSPEPSIA
     Dosage: 30 MG, BID
     Route: 048
     Dates: start: 20040101
  3. VYTORIN [Concomitant]
     Indication: BLOOD CHOLESTEROL INCREASED
     Dosage: 10/40 MG, QD
     Route: 048
     Dates: start: 20040101
  4. MIRALAX [Concomitant]
     Dosage: UNK, QD
  5. ASPIRIN [Concomitant]
  6. MULTIVITAMIN [Concomitant]

REACTIONS (4)
  - CHEST PAIN [None]
  - INTESTINAL POLYP [None]
  - POLYPECTOMY [None]
  - RECTAL HAEMORRHAGE [None]
